FAERS Safety Report 19990662 (Version 1)
Quarter: 2021Q4

REPORT INFORMATION
  Report Type: Spontaneous
  Country: US (occurrence: US)
  Receive Date: 20211024
  Receipt Date: 20211024
  Transmission Date: 20220303
  Serious: No
  Sender: FDA-Public Use
  Company Number: None

PATIENT
  Age: 68 Year
  Sex: Female
  Weight: 49.5 kg

DRUGS (1)
  1. CIPROFLOXACIN [Suspect]
     Active Substance: CIPROFLOXACIN
     Indication: Cystitis
     Dosage: ?          QUANTITY:10 TABLET(S);
     Route: 048
     Dates: start: 20211013, end: 20211018

REACTIONS (1)
  - Headache [None]

NARRATIVE: CASE EVENT DATE: 20211013
